FAERS Safety Report 10192589 (Version 1)
Quarter: 2014Q2

REPORT INFORMATION
  Report Type: Spontaneous
  Country: FR (occurrence: FR)
  Receive Date: 20140523
  Receipt Date: 20140523
  Transmission Date: 20141212
  Serious: Yes (Hospitalization, Other)
  Sender: FDA-Public Use
  Company Number: FR-PFIZER INC-2014141229

PATIENT
  Age: 58 Year
  Sex: Female

DRUGS (4)
  1. METFORMIN HCL [Suspect]
     Dosage: UNK
     Route: 065
     Dates: end: 20131203
  2. TRIATEC [Suspect]
     Dosage: UNK
     Route: 065
     Dates: end: 20131203
  3. COAPROVEL [Suspect]
     Dosage: UNK
     Route: 065
     Dates: end: 20131203
  4. IOMERON [Suspect]
     Dosage: UNK
     Route: 065
     Dates: start: 20131120, end: 20131120

REACTIONS (4)
  - Renal failure acute [Recovered/Resolved]
  - General physical health deterioration [Recovered/Resolved]
  - Asthenia [Recovered/Resolved]
  - Dyspnoea [Recovered/Resolved]
